FAERS Safety Report 6103900-X (Version None)
Quarter: 2009Q1

REPORT INFORMATION
  Report Type: 
  Country: None (occurrence: None)
  Receive Date: 20090305
  Receipt Date: 20090225
  Transmission Date: 20090719
  Serious: Yes (Hospitalization, Congenital Anomaly)
  Sender: FDA-Public Use
  Company Number: A0687236A

PATIENT
  Sex: Male

DRUGS (2)
  1. PAXIL [Suspect]
     Dosage: 20MG PER DAY
     Dates: start: 19930408, end: 20011003
  2. VITAMIN TAB [Concomitant]

REACTIONS (13)
  - ASPERGER'S DISORDER [None]
  - ATRIAL SEPTAL DEFECT [None]
  - AUTISM [None]
  - BLOOD IMMUNOGLOBULIN G DECREASED [None]
  - CYTOGENETIC ABNORMALITY [None]
  - DEVELOPMENTAL DELAY [None]
  - DRUG EXPOSURE DURING PREGNANCY [None]
  - LEFT ATRIAL DILATATION [None]
  - MENTAL RETARDATION [None]
  - MITRAL VALVE INCOMPETENCE [None]
  - MITRAL VALVE PROLAPSE [None]
  - SELECTIVE IGA IMMUNODEFICIENCY [None]
  - VENTRICULAR SEPTAL DEFECT [None]
